FAERS Safety Report 22318540 (Version 1)
Quarter: 2023Q2

REPORT INFORMATION
  Report Type: Spontaneous
  Country: US (occurrence: None)
  Receive Date: 20230515
  Receipt Date: 20230515
  Transmission Date: 20230722
  Serious: Yes (Other)
  Sender: FDA-Public Use
  Company Number: 2023A107552

PATIENT

DRUGS (2)
  1. TAGRISSO [Suspect]
     Active Substance: OSIMERTINIB
     Route: 048
     Dates: start: 201711
  2. ELIQUIS [Concomitant]
     Active Substance: APIXABAN

REACTIONS (6)
  - Neoplasm malignant [Unknown]
  - Pulmonary embolism [Unknown]
  - Dental caries [Not Recovered/Not Resolved]
  - Abscess [Not Recovered/Not Resolved]
  - Thrombosis [Not Recovered/Not Resolved]
  - Blood pressure increased [Unknown]
